FAERS Safety Report 18742318 (Version 1)
Quarter: 2021Q1

REPORT INFORMATION
  Report Type: Spontaneous
  Country: PL (occurrence: PL)
  Receive Date: 20210114
  Receipt Date: 20210114
  Transmission Date: 20210419
  Serious: Yes (Other)
  Sender: FDA-Public Use
  Company Number: PL-MYLANLABS-2021M1001880

PATIENT
  Sex: Male

DRUGS (1)
  1. PREGABALIN. [Suspect]
     Active Substance: PREGABALIN
     Indication: PRODUCT USED FOR UNKNOWN INDICATION
     Dosage: 300 MILLIGRAM, QD(75 MG, 4X/DAY)

REACTIONS (7)
  - Headache [Unknown]
  - Blood pressure increased [Unknown]
  - Visual acuity reduced [Unknown]
  - Dry throat [Unknown]
  - Dry eye [Unknown]
  - Eye pain [Unknown]
  - Dry mouth [Unknown]
